FAERS Safety Report 9512486 (Version 1)
Quarter: 2013Q3

REPORT INFORMATION
  Report Type: Spontaneous
  Country: US (occurrence: US)
  Receive Date: 20130910
  Receipt Date: 20130910
  Transmission Date: 20140515
  Serious: Yes (Death, Other)
  Sender: FDA-Public Use
  Company Number: US-PFIZER INC-2013256285

PATIENT
  Sex: 0

DRUGS (2)
  1. ZYVOX [Suspect]
     Dosage: UNK
  2. VANCOMYCIN HCL [Suspect]
     Dosage: UNK

REACTIONS (3)
  - Death [Fatal]
  - Serotonin syndrome [Unknown]
  - Muscle rigidity [Unknown]
